FAERS Safety Report 8525913-0 (Version None)
Quarter: 2012Q3

REPORT INFORMATION
  Report Type: 
  Country: None (occurrence: None)
  Receive Date: 20120720
  Receipt Date: 20120711
  Transmission Date: 20120928
  Serious: Yes (Hospitalization)
  Sender: FDA-Public Use
  Company Number: CA-FRI-1000037165

PATIENT
  Age: 59 Year
  Sex: Male

DRUGS (5)
  1. ASPIRIN [Concomitant]
  2. PAXIL [Suspect]
  3. LORAZEPAM [Concomitant]
  4. TIAZAC [Suspect]
  5. ESOMEPRAZOLE [Concomitant]

REACTIONS (4)
  - DRUG INTERACTION [None]
  - CHEST PAIN [None]
  - ANGINA PECTORIS [None]
  - PALPITATIONS [None]
